FAERS Safety Report 7528329-9 (Version None)
Quarter: 2011Q2

REPORT INFORMATION
  Report Type: 
  Country: None (occurrence: None)
  Receive Date: 20110607
  Receipt Date: 20110526
  Transmission Date: 20111010
  Serious: Yes (Hospitalization)
  Sender: FDA-Public Use
  Company Number: AU-JNJFOC-20110508460

PATIENT
  Sex: Male

DRUGS (21)
  1. ABIRATERONE ACETATE [Suspect]
     Route: 048
     Dates: start: 20101214
  2. HERRON IRON COMPLEX [Concomitant]
     Indication: FATIGUE
     Route: 048
     Dates: start: 20100830, end: 20110401
  3. LEUPROLIDE ACETATE [Concomitant]
     Route: 030
     Dates: start: 20040101
  4. CHOLECALCIFEROL [Concomitant]
     Indication: VITAMIN SUPPLEMENTATION
     Route: 048
     Dates: start: 20110201
  5. TRANEXAMIC ACID [Concomitant]
     Indication: HAEMATURIA
     Route: 048
     Dates: start: 20110422
  6. FELODIPINE [Concomitant]
     Indication: HYPERTENSION
     Route: 048
     Dates: start: 20021001
  7. LEUPROLIDE ACETATE [Concomitant]
     Indication: HORMONE THERAPY
     Route: 030
     Dates: start: 20081022
  8. POTASSIUM CHLORIDE [Concomitant]
     Indication: HYPOKALAEMIA
     Route: 048
     Dates: start: 20100209
  9. HERRON IRON COMPLEX [Concomitant]
     Route: 048
     Dates: start: 20100824, end: 20100829
  10. MONOPRIL PLUS [Concomitant]
     Indication: HYPERTENSION
     Route: 048
     Dates: start: 20090729
  11. SODIUM CHLORIDE [Concomitant]
     Indication: RENAL IMPAIRMENT
     Route: 042
     Dates: start: 20110513, end: 20110517
  12. HARTMANN'S SOLUTION [Concomitant]
     Indication: FLUID REPLACEMENT
     Route: 042
     Dates: start: 20110505, end: 20110505
  13. PREDNISONE [Suspect]
     Indication: PROSTATE CANCER METASTATIC
     Route: 048
     Dates: start: 20101214
  14. PREDNISONE [Suspect]
     Route: 048
  15. LEUPROLIDE ACETATE [Concomitant]
     Route: 030
     Dates: start: 20040101
  16. LEUPROLIDE ACETATE [Concomitant]
     Indication: PROSTATE CANCER
     Route: 030
     Dates: start: 20081022
  17. HERRON IRON COMPLEX [Concomitant]
     Route: 048
     Dates: start: 20110401
  18. NYSTATIN [Concomitant]
     Indication: ORAL CANDIDIASIS
     Route: 048
     Dates: start: 20101001
  19. SODIUM CHLORIDE [Concomitant]
     Route: 042
     Dates: start: 20110428, end: 20110429
  20. ABIRATERONE ACETATE [Suspect]
     Indication: PROSTATE CANCER METASTATIC
     Route: 048
     Dates: start: 20081022
  21. HARTMANN'S SOLUTION [Concomitant]
     Indication: RENAL IMPAIRMENT
     Route: 042
     Dates: start: 20110505, end: 20110505

REACTIONS (1)
  - URINARY RETENTION [None]
